FAERS Safety Report 9289015 (Version 2)
Quarter: 2013Q2

REPORT INFORMATION
  Report Type: Spontaneous
  Country: IT (occurrence: IT)
  Receive Date: 20130514
  Receipt Date: 20130516
  Transmission Date: 20140414
  Serious: Yes (Hospitalization)
  Sender: FDA-Public Use
  Company Number: IT-VERTEX PHARMACEUTICALS INC-2013-006023

PATIENT
  Age: 63 Year
  Sex: Male

DRUGS (5)
  1. INCIVO [Suspect]
     Indication: HEPATITIS CHRONIC ACTIVE
     Dosage: 2250 MG, QD
     Route: 048
     Dates: start: 20130302, end: 20130423
  2. PEGASYS [Suspect]
     Indication: HEPATITIS CHRONIC ACTIVE
     Dosage: DOSAGE FORM: UNSPECIFIED
     Route: 058
     Dates: start: 20130302, end: 20130423
  3. REBETOL [Suspect]
     Indication: HEPATITIS CHRONIC ACTIVE
     Dosage: DOSAGE FORM: UNSPECIFIED
     Route: 048
     Dates: start: 20130302, end: 20130423
  4. NEBIVOLOL [Concomitant]
     Indication: PRODUCT USED FOR UNKNOWN INDICATION
  5. METFORMIN [Concomitant]
     Indication: PRODUCT USED FOR UNKNOWN INDICATION

REACTIONS (5)
  - Amylase increased [Recovered/Resolved]
  - Leukopenia [Recovered/Resolved]
  - Lipase increased [Recovered/Resolved]
  - Renal failure [Recovered/Resolved]
  - Anaemia [Recovered/Resolved]
